FAERS Safety Report 4289943-X (Version None)
Quarter: 2004Q1

REPORT INFORMATION
  Report Type: 
  Country: None (occurrence: None)
  Receive Date: 20040209
  Receipt Date: 20040129
  Transmission Date: 20041129
  Serious: Yes (Hospitalization)
  Sender: FDA-Public Use
  Company Number: PHNR2004AU00538

PATIENT
  Age: 76 Year
  Sex: Male

DRUGS (4)
  1. VOLTAREN [Suspect]
     Indication: RHEUMATIC HEART DISEASE
     Dates: end: 20030705
  2. CELEBREX [Suspect]
     Indication: RHEUMATOID ARTHRITIS
     Dosage: 200 MG, QD
     Route: 048
     Dates: start: 20030705, end: 20030712
  3. BETALOC [Concomitant]
  4. RENITEC [Concomitant]

REACTIONS (2)
  - DRUG INTERACTION [None]
  - NEPHROTIC SYNDROME [None]
